FAERS Safety Report 8131980-9 (Version None)
Quarter: 2012Q1

REPORT INFORMATION
  Report Type: 
  Country: None (occurrence: None)
  Receive Date: 20120208
  Receipt Date: 20120124
  Transmission Date: 20120608
  Serious: Yes (Other)
  Sender: FDA-Public Use
  Company Number: 2012010143

PATIENT
  Sex: Male
  Weight: 89.8122 kg

DRUGS (2)
  1. MUSE [Suspect]
     Indication: ERECTILE DYSFUNCTION
     Dosage: 500 MCG, AS REQUIRED, URETHRAL
     Route: 066
     Dates: start: 20090101
  2. CIALIS [Concomitant]

REACTIONS (3)
  - TESTICULAR PAIN [None]
  - URETHRAL HAEMORRHAGE [None]
  - TYPE 2 DIABETES MELLITUS [None]
